FAERS Safety Report 8539750-4 (Version None)
Quarter: 2012Q3

REPORT INFORMATION
  Report Type: 
  Country: None (occurrence: None)
  Receive Date: 20120726
  Receipt Date: 20111208
  Transmission Date: 20120928
  Serious: No
  Sender: FDA-Public Use
  Company Number: US-ASTRAZENECA-2009SE07837

PATIENT
  Age: 57 Year
  Sex: Female

DRUGS (2)
  1. SEROQUEL [Suspect]
     Route: 048
  2. SEROQUEL [Suspect]
     Route: 048

REACTIONS (12)
  - PANIC ATTACK [None]
  - CONSTIPATION [None]
  - BLOOD COUNT ABNORMAL [None]
  - ANAEMIA [None]
  - BIPOLAR DISORDER [None]
  - HEADACHE [None]
  - BLOOD PRESSURE ABNORMAL [None]
  - RECTAL TENESMUS [None]
  - HAEMORRHOIDS [None]
  - HYPERSOMNIA [None]
  - DRUG DOSE OMISSION [None]
  - HAEMORRHAGE [None]
